FAERS Safety Report 10621095 (Version 3)
Quarter: 2015Q2

REPORT INFORMATION
  Report Type: Spontaneous
  Country: IT (occurrence: IT)
  Receive Date: 20141203
  Receipt Date: 20150414
  Transmission Date: 20150821
  Serious: Yes (Hospitalization)
  Sender: FDA-Public Use
  Company Number: IT-AUROBINDO-AUR-APL-2014-12643

PATIENT
  Age: 40 Year
  Sex: Male

DRUGS (1)
  1. LEVOFLOXACIN AUROBINDO FILM-COATED TABLETS 500MG [Suspect]
     Active Substance: LEVOFLOXACIN
     Indication: URETHRITIS
     Dosage: 500 MG, TOTAL
     Route: 048
     Dates: start: 20141106, end: 20141106

REACTIONS (4)
  - Dysphonia [Recovered/Resolved]
  - Pruritus [Recovered/Resolved]
  - Rash macular [Recovered/Resolved]
  - Dermatitis [Recovered/Resolved]

NARRATIVE: CASE EVENT DATE: 20141106
